FAERS Safety Report 21554126 (Version 1)
Quarter: 2022Q4

REPORT INFORMATION
  Report Type: Report from Study
  Country: CA (occurrence: CA)
  Receive Date: 20221104
  Receipt Date: 20221104
  Transmission Date: 20230113
  Serious: Yes (Other)
  Sender: FDA-Public Use
  Company Number: CA-ABBVIE-21K-028-3818823-00

PATIENT
  Age: 32 Year
  Sex: Female

DRUGS (4)
  1. HUMIRA [Suspect]
     Active Substance: ADALIMUMAB
     Indication: Crohn^s disease
     Dosage: FORM STRENGTH:40MG
     Route: 058
     Dates: start: 20090710
  2. HUMIRA [Suspect]
     Active Substance: ADALIMUMAB
     Dosage: FORM STRENGTH:40MG
     Route: 058
     Dates: start: 202103
  3. HUMIRA [Suspect]
     Active Substance: ADALIMUMAB
     Dosage: FORM STRENGTH:40 MG
     Route: 058
  4. ENTOCORT [Concomitant]
     Active Substance: BUDESONIDE
     Indication: Product used for unknown indication

REACTIONS (13)
  - Gastrointestinal obstruction [Recovering/Resolving]
  - Fistula discharge [Not Recovered/Not Resolved]
  - Therapeutic product effect incomplete [Not Recovered/Not Resolved]
  - Fistula [Not Recovered/Not Resolved]
  - Vaginal fistula [Unknown]
  - Nausea [Recovering/Resolving]
  - Diarrhoea [Unknown]
  - Haematochezia [Unknown]
  - Bloody discharge [Unknown]
  - Lower urinary tract symptoms [Unknown]
  - Frequent bowel movements [Unknown]
  - Eructation [Recovering/Resolving]
  - Abdominal distension [Recovering/Resolving]

NARRATIVE: CASE EVENT DATE: 20220701
